FAERS Safety Report 7622517-9 (Version None)
Quarter: 2011Q3

REPORT INFORMATION
  Report Type: 
  Country: None (occurrence: None)
  Receive Date: 20110712
  Receipt Date: 20110630
  Transmission Date: 20111222
  Serious: Yes (Other)
  Sender: FDA-Public Use
  Company Number: 2010SP048417

PATIENT
  Age: 26 Year
  Sex: Female
  Weight: 51 kg

DRUGS (4)
  1. DESOGESTREL AND ETHINYL ESTRADIOL [Suspect]
     Indication: CONTRACEPTION
     Dosage: ;PO
     Route: 048
     Dates: start: 20030101
  2. NORFLOXACIN [Suspect]
     Indication: URINARY TRACT INFECTION
     Dosage: ; PO
     Route: 048
     Dates: start: 20110126
  3. AMOXICILLIN AND CLAVULANATE POTASSIUM [Suspect]
     Indication: SINUSITIS
     Dosage: ;PO
     Route: 048
     Dates: start: 20100908
  4. MINOCYCLINE HCL [Suspect]
     Indication: PRODUCT USED FOR UNKNOWN INDICATION
     Dates: start: 20101109

REACTIONS (6)
  - DRUG ADMINISTRATION ERROR [None]
  - URINARY TRACT INFECTION [None]
  - ABDOMINAL PAIN UPPER [None]
  - SINUSITIS [None]
  - PNEUMONIA [None]
  - DRUG INTERACTION [None]
